FAERS Safety Report 4595385-X (Version None)
Quarter: 2005Q1

REPORT INFORMATION
  Report Type: 
  Country: None (occurrence: None)
  Receive Date: 20050225
  Receipt Date: 20050225
  Transmission Date: 20050727
  Serious: Yes (Life-Threatening)
  Sender: FDA-Public Use
  Company Number: None

PATIENT
  Age: 27 Year
  Sex: Female
  Weight: 47.6277 kg

DRUGS (2)
  1. ADVAIR DISKUS 250/50 [Suspect]
     Indication: ASTHMA
     Dosage: 250/50  2X PER DAY RESPIRATOR
     Route: 055
  2. ADVAIR DISKUS 250/50 [Suspect]
     Indication: SINUS DISORDER
     Dosage: 250/50  2X PER DAY RESPIRATOR
     Route: 055

REACTIONS (7)
  - CHEST DISCOMFORT [None]
  - DYSPNOEA [None]
  - FEELING ABNORMAL [None]
  - GASTROOESOPHAGEAL REFLUX DISEASE [None]
  - HEADACHE [None]
  - OESOPHAGEAL CANDIDIASIS [None]
  - STRESS [None]
